FAERS Safety Report 8923991 (Version 2)
Quarter: 2013Q1

REPORT INFORMATION
  Report Type: Spontaneous
  Country: GB (occurrence: GB)
  Receive Date: 20121127
  Receipt Date: 20130116
  Transmission Date: 20140127
  Serious: Yes (Life-Threatening)
  Sender: FDA-Public Use
  Company Number: GB-ACCORD-015341

PATIENT
  Age: 68 Year
  Sex: Male
  Weight: 77.2 kg

DRUGS (6)
  1. DOMPERIDONE [Concomitant]
     Indication: NAUSEA
     Route: 048
     Dates: start: 20121022
  2. DEXAMETHASONE [Concomitant]
     Indication: NAUSEA
     Route: 042
     Dates: start: 20121022
  3. SCOPOLAMINE HYDROBROMIDE [Concomitant]
     Route: 048
     Dates: start: 20121022, end: 20121022
  4. ONDANSETRON [Concomitant]
     Indication: NAUSEA
     Route: 042
     Dates: start: 20121022, end: 20121022
  5. IRINOTECAN HYDROCHLORIDE [Suspect]
     Indication: COLORECTAL CANCER METASTATIC
     Route: 042
     Dates: start: 20121022
  6. XELODA [Suspect]
     Indication: COLORECTAL CANCER METASTATIC
     Route: 048
     Dates: start: 20121022

REACTIONS (1)
  - Cerebrovascular accident [Not Recovered/Not Resolved]
